FAERS Safety Report 24145511 (Version 1)
Quarter: 2024Q3

REPORT INFORMATION
  Report Type: Spontaneous
  Country: ES (occurrence: ES)
  Receive Date: 20240729
  Receipt Date: 20240729
  Transmission Date: 20241017
  Serious: Yes (Hospitalization, Other)
  Sender: SANOFI AVENTIS
  Company Number: None

PATIENT
  Age: 80 Year
  Sex: Male

DRUGS (6)
  1. TEICOPLANIN [Suspect]
     Active Substance: TEICOPLANIN
     Indication: Prophylaxis
     Dosage: 400 MG, QD
     Route: 042
     Dates: start: 20240521, end: 20240521
  2. CEFAZOLIN [Suspect]
     Active Substance: CEFAZOLIN
     Indication: Prophylaxis
     Dosage: 2 G, QD
     Route: 042
     Dates: start: 20240521, end: 20240522
  3. ONDANSETRON HYDROCHLORIDE [Suspect]
     Active Substance: ONDANSETRON HYDROCHLORIDE
     Indication: Anaesthetic premedication
     Dosage: 8 MG, QD
     Route: 042
     Dates: start: 20240521, end: 20240522
  4. ENOXAPARIN SODIUM [Suspect]
     Active Substance: ENOXAPARIN SODIUM
     Indication: Thrombosis prophylaxis
     Dosage: 4000 IU, QD
     Route: 058
     Dates: start: 20240521, end: 20240524
  5. METAMIZOLE SODIUM [Suspect]
     Active Substance: METAMIZOLE SODIUM
     Indication: Procedural pain
     Dosage: UNK
     Route: 042
     Dates: start: 20240521, end: 20240524
  6. TRAMADOL HYDROCHLORIDE [Suspect]
     Active Substance: TRAMADOL HYDROCHLORIDE
     Indication: Procedural pain
     Dosage: UNK
     Route: 042
     Dates: start: 20240521, end: 20240522

REACTIONS (1)
  - Generalised bullous fixed drug eruption [Recovered/Resolved]

NARRATIVE: CASE EVENT DATE: 20240522
